FAERS Safety Report 4475419-3 (Version None)
Quarter: 2004Q4

REPORT INFORMATION
  Report Type: 
  Country: None (occurrence: None)
  Receive Date: 20041014
  Receipt Date: 20041014
  Transmission Date: 20050328
  Serious: Yes (Hospitalization)
  Sender: FDA-Public Use
  Company Number: None

PATIENT
  Age: 58 Year
  Sex: Female
  Weight: 86.2 kg

DRUGS (9)
  1. PYRIDOSTIGMINE BROMIDE [Suspect]
     Indication: MYASTHENIA GRAVIS
     Dosage: 60 MG PO BID
     Route: 048
  2. LEVOTHYROXINE SODIUM [Concomitant]
  3. ALLOPURINOL [Concomitant]
  4. DEPAKOTE ER [Concomitant]
  5. TRAZODONE HCL [Concomitant]
  6. LASIX [Concomitant]
  7. LORAZEPAM [Concomitant]
  8. PROTONIX [Concomitant]
  9. OXBUTYNIN [Concomitant]

REACTIONS (6)
  - ABDOMINAL PAIN [None]
  - ASTHENIA [None]
  - DEHYDRATION [None]
  - EPIGASTRIC DISCOMFORT [None]
  - LOOSE STOOLS [None]
  - STOOLS WATERY [None]
